FAERS Safety Report 7107426-6 (Version None)
Quarter: 2010Q4

REPORT INFORMATION
  Report Type: 
  Country: None (occurrence: None)
  Receive Date: 20101110
  Receipt Date: 20101108
  Transmission Date: 20110411
  Serious: Yes (Other)
  Sender: FDA-Public Use
  Company Number: 2010SP055409

PATIENT
  Age: 59 Year
  Sex: Female
  Weight: 80 kg

DRUGS (2)
  1. ORMIGREIN (ORMIGREIN /01755201/) [Suspect]
     Indication: MIGRAINE
     Dosage: PO
     Route: 048
  2. OMEPRAZOLE [Concomitant]

REACTIONS (5)
  - DRUG DEPENDENCE [None]
  - DRUG INEFFECTIVE [None]
  - HYPERCHOLESTEROLAEMIA [None]
  - HYPERTENSION [None]
  - MENINGIOMA [None]
